FAERS Safety Report 6397701-5 (Version None)
Quarter: 2009Q4

REPORT INFORMATION
  Report Type: 
  Country: None (occurrence: None)
  Receive Date: 20091012
  Receipt Date: 20090928
  Transmission Date: 20100525
  Serious: Yes (Hospitalization, Other)
  Sender: FDA-Public Use
  Company Number: GB-MYLANLABS-2009S1017126

PATIENT
  Age: 69 Year
  Sex: Female

DRUGS (10)
  1. CITALOPRAM HYDROBROMIDE [Suspect]
     Indication: DRUG USE FOR UNKNOWN INDICATION
  2. DICLOFENAC [Suspect]
     Indication: DRUG USE FOR UNKNOWN INDICATION
  3. DOMPERIDONE [Suspect]
     Indication: DRUG USE FOR UNKNOWN INDICATION
  4. FUROSEMIDE [Suspect]
     Indication: DRUG USE FOR UNKNOWN INDICATION
  5. LOPERAMIDE [Suspect]
     Indication: DRUG USE FOR UNKNOWN INDICATION
  6. PROPRANOLOL [Suspect]
     Indication: DRUG USE FOR UNKNOWN INDICATION
  7. RISPERIDONE [Suspect]
     Indication: DRUG USE FOR UNKNOWN INDICATION
  8. ZOPICLONE [Suspect]
     Indication: DRUG USE FOR UNKNOWN INDICATION
  9. CO-CODAMOL [Suspect]
     Indication: DRUG USE FOR UNKNOWN INDICATION
  10. LOPRAZOLAM [Suspect]
     Indication: DRUG USE FOR UNKNOWN INDICATION

REACTIONS (5)
  - CHOLELITHIASIS [None]
  - DECREASED APPETITE [None]
  - DUODENAL ULCER [None]
  - LARGE INTESTINAL ULCER [None]
  - MALAISE [None]
